FAERS Safety Report 9437053 (Version 2)
Quarter: 2013Q3

REPORT INFORMATION
  Report Type: Spontaneous
  Country: US (occurrence: US)
  Receive Date: 20130802
  Receipt Date: 20130826
  Transmission Date: 20140515
  Serious: Yes (Death, Other)
  Sender: FDA-Public Use
  Company Number: US-PFIZER INC-2013222361

PATIENT
  Age: 81 Year
  Sex: Female

DRUGS (10)
  1. REVATIO [Suspect]
     Indication: PULMONARY HYPERTENSION
     Dosage: 20 MG, 3X/DAY
     Route: 048
     Dates: start: 20110105
  2. LASIX [Concomitant]
     Dosage: UNK
  3. PRILOSEC [Concomitant]
     Dosage: UNK
  4. OXYGEN [Concomitant]
     Dosage: UNK
  5. ASA [Concomitant]
     Dosage: UNK
  6. AMLODIPINE [Concomitant]
     Indication: CARDIAC DISORDER
     Dosage: UNK
  7. AMLODIPINE [Concomitant]
     Indication: BLOOD PRESSURE ABNORMAL
  8. ATENOLOL [Concomitant]
     Indication: CARDIAC DISORDER
     Dosage: UNK
  9. ATENOLOL [Concomitant]
     Indication: BLOOD PRESSURE ABNORMAL
  10. WARFARIN [Concomitant]
     Dosage: UNK

REACTIONS (1)
  - Pulmonary hypertension [Fatal]
